FAERS Safety Report 12934852 (Version 1)
Quarter: 2016Q4

REPORT INFORMATION
  Report Type: Spontaneous
  Country: IR (occurrence: IR)
  Receive Date: 20161112
  Receipt Date: 20161112
  Transmission Date: 20170207
  Serious: Yes (Other)
  Sender: FDA-Public Use
  Company Number: IR-FLAMINGO-000404

PATIENT
  Age: 43 Year
  Sex: Female

DRUGS (1)
  1. METRONIDAZOLE. [Suspect]
     Active Substance: METRONIDAZOLE
     Indication: HELICOBACTER INFECTION
     Dosage: TOTAL DOSE OF 28 G

REACTIONS (4)
  - Deafness bilateral [Recovering/Resolving]
  - Nervous system disorder [Unknown]
  - Hemiparesis [Recovering/Resolving]
  - Toxic encephalopathy [Unknown]
